FAERS Safety Report 5847270-0 (Version None)
Quarter: 2008Q3

REPORT INFORMATION
  Report Type: 
  Country: None (occurrence: None)
  Receive Date: 20080815
  Receipt Date: 20080808
  Transmission Date: 20090109
  Serious: Yes (Hospitalization)
  Sender: FDA-Public Use
  Company Number: FR-ABBOTT-08P-056-0469873-00

PATIENT
  Sex: Female

DRUGS (8)
  1. DEPAKENE [Suspect]
     Indication: ACUTE MYELOID LEUKAEMIA
     Route: 048
     Dates: start: 20080206, end: 20080209
  2. AZACITIDINE [Concomitant]
     Indication: ACUTE MYELOID LEUKAEMIA
     Route: 058
     Dates: start: 20080206, end: 20080212
  3. DARBEPOETIN ALFA [Concomitant]
     Indication: ACUTE MYELOID LEUKAEMIA
     Route: 065
     Dates: start: 20071123, end: 20071220
  4. DARBEPOETIN ALFA [Concomitant]
     Route: 065
     Dates: start: 20071221
  5. LISINOPRIL [Concomitant]
     Indication: HYPERTENSION
     Route: 048
  6. LOPRESORETIC [Concomitant]
     Indication: HYPERTENSION
     Route: 048
  7. ANASTROZOLE [Concomitant]
     Indication: BREAST CANCER
     Route: 048
     Dates: start: 20040101
  8. TRENTOIN [Concomitant]
     Indication: CHEMOTHERAPY
     Dates: start: 20080206, end: 20080304

REACTIONS (4)
  - ACCIDENTAL OVERDOSE [None]
  - DRUG LEVEL INCREASED [None]
  - HYPONATRAEMIA [None]
  - SOMNOLENCE [None]
